FAERS Safety Report 8164448-4 (Version None)
Quarter: 2012Q1

REPORT INFORMATION
  Report Type: 
  Country: None (occurrence: None)
  Receive Date: 20120224
  Receipt Date: 20120216
  Transmission Date: 20120608
  Serious: Yes (Other)
  Sender: FDA-Public Use
  Company Number: US-GILEAD-2012-0051362

PATIENT
  Age: 31 Week

DRUGS (3)
  1. EMTRICITABINE AND TENOFOVIR DISOPROXIL FUMARATE [Suspect]
     Indication: HIV INFECTION
     Route: 064
  2. NORVIR [Concomitant]
     Indication: HIV INFECTION
     Route: 064
  3. REYATAZ [Concomitant]
     Indication: HIV INFECTION
     Route: 064

REACTIONS (1)
  - FOETAL GROWTH RESTRICTION [None]
